FAERS Safety Report 20668747 (Version 1)
Quarter: 2022Q2

REPORT INFORMATION
  Report Type: Spontaneous
  Country: US (occurrence: US)
  Receive Date: 20220404
  Receipt Date: 20220404
  Transmission Date: 20220721
  Serious: No
  Sender: FDA-Public Use
  Company Number: US-PFIZER INC-2021434310

PATIENT
  Age: 9 Year
  Sex: Male
  Weight: 22.68 kg

DRUGS (1)
  1. GENOTROPIN [Suspect]
     Active Substance: SOMATROPIN
     Indication: Blood growth hormone abnormal
     Dosage: 1.3 MG, DAILY

REACTIONS (6)
  - Device leakage [Unknown]
  - Device information output issue [Unknown]
  - Device breakage [Unknown]
  - Intentional product use issue [Unknown]
  - Drug dose omission by device [Unknown]
  - Poor quality device used [Unknown]

NARRATIVE: CASE EVENT DATE: 20200425
